FAERS Safety Report 6800744-8 (Version None)
Quarter: 2010Q2

REPORT INFORMATION
  Report Type: 
  Country: None (occurrence: None)
  Receive Date: 20100624
  Receipt Date: 20100611
  Transmission Date: 20101027
  Serious: Yes (Life-Threatening)
  Sender: FDA-Public Use
  Company Number: LEO-2010-00544

PATIENT
  Age: 34 Year
  Sex: Female

DRUGS (2)
  1. TACLONEX SCALP [Suspect]
     Indication: PSORIASIS
     Dosage: (1 IN 1 D),TOPICAL
     Route: 061
     Dates: start: 20100325, end: 20100424
  2. GINODEN (ETHINYLESTRADIOL, GESTODENE) (TABLETS) [Concomitant]

REACTIONS (6)
  - APPLICATION SITE ERYTHEMA [None]
  - APPLICATION SITE OEDEMA [None]
  - LYMPHADENOPATHY [None]
  - PYREXIA [None]
  - RASH PAPULAR [None]
  - RASH PUSTULAR [None]
